FAERS Safety Report 8199007-0 (Version None)
Quarter: 2012Q1

REPORT INFORMATION
  Report Type: 
  Country: None (occurrence: None)
  Receive Date: 20120309
  Receipt Date: 20120305
  Transmission Date: 20120608
  Serious: Yes (Hospitalization)
  Sender: FDA-Public Use
  Company Number: US-GLAXOSMITHKLINE-A0766677A

PATIENT
  Age: 59 Year
  Sex: Male
  Weight: 104.5 kg

DRUGS (15)
  1. DIGOXIN [Concomitant]
  2. DURAGESIC-100 [Concomitant]
  3. ASPIRIN [Concomitant]
  4. LASIX [Concomitant]
  5. AVANDIA [Suspect]
     Indication: TYPE 2 DIABETES MELLITUS
     Dosage: 4MG TWICE PER DAY
     Route: 048
     Dates: start: 20060726, end: 20061209
  6. LEVAQUIN [Concomitant]
  7. LIPITOR [Concomitant]
  8. ARTHROTEC [Concomitant]
  9. DILTIAZEM HCL [Concomitant]
  10. AVANDAMET [Suspect]
     Indication: DIABETES MELLITUS
     Route: 048
     Dates: start: 20041231, end: 20070513
  11. ZESTRIL [Concomitant]
  12. POTASSIUM CHLORIDE [Concomitant]
  13. SPIRONOLACTONE [Concomitant]
  14. COREG [Concomitant]
  15. COUMADIN [Concomitant]

REACTIONS (2)
  - CEREBROVASCULAR ACCIDENT [None]
  - CARDIAC FAILURE CONGESTIVE [None]
